FAERS Safety Report 10065365 (Version 1)
Quarter: 2014Q2

REPORT INFORMATION
  Report Type: Spontaneous
  Country: IT (occurrence: IT)
  Receive Date: 20140408
  Receipt Date: 20140408
  Transmission Date: 20141212
  Serious: Yes (Hospitalization)
  Sender: FDA-Public Use
  Company Number: IT-ELI_LILLY_AND_COMPANY-IT201404000187

PATIENT
  Age: 72 Year
  Sex: Female

DRUGS (9)
  1. CYMBALTA [Suspect]
     Indication: COGNITIVE DISORDER
     Dosage: 1 DF, QD
     Route: 048
     Dates: start: 20130301, end: 20140314
  2. TAVOR                              /00273201/ [Suspect]
     Indication: PRODUCT USED FOR UNKNOWN INDICATION
     Dosage: 1 DF, QD
     Dates: start: 20140204, end: 20140314
  3. TRIATEC HCT [Suspect]
     Indication: HYPERTENSION
     Dosage: 1 DF, QD
     Route: 048
     Dates: start: 20130101, end: 20140312
  4. HALDOL                             /00027401/ [Suspect]
     Indication: COGNITIVE DISORDER
     Dosage: 15 DROPS, QD
     Route: 048
     Dates: start: 20130301, end: 20140312
  5. SIMVASTATIN [Concomitant]
  6. OMEPRAZOLE [Concomitant]
     Dosage: 20 MG, UNK
     Route: 048
  7. TACHIDOL [Concomitant]
     Dosage: 3 UNK, UNK
     Route: 048
  8. TRITTICO [Concomitant]
     Dosage: 1 DF, UNK
     Route: 048
  9. LAEVOLAC [Concomitant]

REACTIONS (4)
  - Electrocardiogram QT prolonged [Recovered/Resolved]
  - Confusional state [Recovered/Resolved]
  - Hyponatraemia [Recovered/Resolved]
  - Off label use [Unknown]
